FAERS Safety Report 9321433 (Version 1)
Quarter: 2013Q2

REPORT INFORMATION
  Report Type: Spontaneous
  Country: CA (occurrence: CA)
  Receive Date: 20130531
  Receipt Date: 20130531
  Transmission Date: 20140414
  Serious: Yes (Other)
  Sender: FDA-Public Use
  Company Number: CA-TEVA-409005USA

PATIENT
  Age: 24 Year
  Sex: Female

DRUGS (2)
  1. CARBOPLATIN [Suspect]
     Dosage: 3.381 MILLIGRAM DAILY; SOLUTION INTRAVENOUS
     Route: 042
  2. PACLITAXEL INJECTION [Concomitant]
     Dosage: LIQUID INTRAVENOUS

REACTIONS (3)
  - Dyspnoea [Recovered/Resolved]
  - Throat irritation [Recovered/Resolved]
  - Throat tightness [Recovered/Resolved]
